FAERS Safety Report 13776923 (Version 3)
Quarter: 2017Q3

REPORT INFORMATION
  Report Type: Report from Study
  Country: US (occurrence: US)
  Receive Date: 20170720
  Receipt Date: 20170808
  Transmission Date: 20171127
  Serious: Yes (Death, Hospitalization)
  Sender: FDA-Public Use
  Company Number: US-SEATTLE GENETICS-2017SGN01762

PATIENT
  Age: 65 Year
  Sex: Male

DRUGS (18)
  1. PETROLATUM                         /01007601/ [Concomitant]
  2. SIROLIMUS. [Concomitant]
     Active Substance: SIROLIMUS
  3. TACROLIMUS. [Concomitant]
     Active Substance: TACROLIMUS
  4. BRENTUXIMAB VEDOTIN [Suspect]
     Active Substance: BRENTUXIMAB VEDOTIN
     Indication: GRAFT VERSUS HOST DISEASE
     Dosage: 0.8 MG/KG, QWEEK
     Route: 042
     Dates: start: 20150311, end: 20150311
  5. DOXYCYCLINE HYCLATE. [Concomitant]
     Active Substance: DOXYCYCLINE HYCLATE
  6. GLIPIZIDE. [Concomitant]
     Active Substance: GLIPIZIDE
  7. MAGNESIUM OXIDE. [Concomitant]
     Active Substance: MAGNESIUM OXIDE
  8. ACETAMINOPHEN. [Concomitant]
     Active Substance: ACETAMINOPHEN
  9. FAMCICLOVIR. [Concomitant]
     Active Substance: FAMCICLOVIR
  10. OMEPRAZOLE. [Concomitant]
     Active Substance: OMEPRAZOLE
  11. DRONABINOL. [Concomitant]
     Active Substance: DRONABINOL
  12. PREDNISONE. [Concomitant]
     Active Substance: PREDNISONE
  13. TRAZODONE [Concomitant]
     Active Substance: TRAZODONE HYDROCHLORIDE
  14. AMLODIPINE [Concomitant]
     Active Substance: AMLODIPINE BESYLATE
  15. METFORMIN [Concomitant]
     Active Substance: METFORMIN HYDROCHLORIDE
  16. OXYCODONE [Concomitant]
     Active Substance: OXYCODONE
  17. LORAZEPAM. [Concomitant]
     Active Substance: LORAZEPAM
  18. PENTAMIDINE ISETHIONATE [Concomitant]
     Active Substance: PENTAMIDINE ISETHIONATE

REACTIONS (3)
  - Parainfluenzae virus infection [Not Recovered/Not Resolved]
  - Respiratory failure [Fatal]
  - Pneumocystis jirovecii pneumonia [Not Recovered/Not Resolved]

NARRATIVE: CASE EVENT DATE: 20150323
